FAERS Safety Report 13269107 (Version 1)
Quarter: 2017Q1

REPORT INFORMATION
  Report Type: Report from Study
  Country: US (occurrence: US)
  Receive Date: 20170224
  Receipt Date: 20170224
  Transmission Date: 20170428
  Serious: Yes (Death)
  Sender: FDA-Public Use
  Company Number: US-PFIZER INC-2017078190

PATIENT
  Age: 52 Year

DRUGS (4)
  1. METRONIDAZOLE. [Concomitant]
     Active Substance: METRONIDAZOLE
     Dosage: UNK
  2. PENTOSTATIN. [Suspect]
     Active Substance: PENTOSTATIN
     Indication: MARGINAL ZONE LYMPHOMA STAGE IV
     Dosage: 4 MG/M2, CYCLIC (ON DAY ONE AND THEN EVERY 21 D FOR 6 CYCLES)
  3. CYCLOPHOSPHAMIDE. [Suspect]
     Active Substance: CYCLOPHOSPHAMIDE
     Indication: MARGINAL ZONE LYMPHOMA STAGE IV
     Dosage: 600 MG/M2, CYCLIC (ON DAY ONE AND THEN EVERY 21 D FOR 6 CYCLES)
  4. RITUXIMAB [Suspect]
     Active Substance: RITUXIMAB
     Indication: MARGINAL ZONE LYMPHOMA STAGE IV
     Dosage: 375 MG/M2, CYCLIC (ON DAY ONE AND THEN EVERY 21 D FOR 6 CYCLES)

REACTIONS (2)
  - Gliosis [Fatal]
  - Toxicity to various agents [Fatal]
